FAERS Safety Report 9395922 (Version 1)
Quarter: 2013Q3

REPORT INFORMATION
  Report Type: Report from Study
  Country: JP (occurrence: JP)
  Receive Date: 20130711
  Receipt Date: 20130711
  Transmission Date: 20140515
  Serious: Yes (Death, Other)
  Sender: FDA-Public Use
  Company Number: JP-BRISTOL-MYERS SQUIBB COMPANY-19064039

PATIENT
  Age: 61 Year
  Sex: Female
  Weight: 47.6 kg

DRUGS (6)
  1. SPRYCEL [Suspect]
     Indication: CHRONIC MYELOID LEUKAEMIA
     Route: 048
     Dates: start: 20090617, end: 20120108
  2. HYPEN [Concomitant]
     Dosage: TABS, BEFORE SPRYCEL FIRST ADMISTRATION
     Route: 048
     Dates: end: 20090816
  3. MUCOSTA [Concomitant]
     Dosage: BEFORE SPRYCEL FIRST ADMISTRATION
     Route: 048
     Dates: end: 20090816
  4. ZYLORIC [Concomitant]
     Indication: PROPHYLAXIS
     Dosage: TABS
     Route: 048
     Dates: start: 20090617, end: 20090722
  5. BONALON [Concomitant]
     Dosage: BEFORE SPRYCEL FIRST ADMINISTRATION
     Route: 048
     Dates: end: 20100812
  6. GASTER D [Concomitant]
     Indication: PROPHYLAXIS
     Dosage: TABS
     Route: 048
     Dates: start: 20100127, end: 20120108

REACTIONS (3)
  - Sudden cardiac death [Fatal]
  - Malignant neoplasm progression [Unknown]
  - Pleural effusion [Not Recovered/Not Resolved]
